FAERS Safety Report 18054041 (Version 2)
Quarter: 2020Q3

REPORT INFORMATION
  Report Type: Spontaneous
  Country: US (occurrence: US)
  Receive Date: 20200722
  Receipt Date: 20200727
  Transmission Date: 20201103
  Serious: No
  Sender: FDA-Public Use
  Company Number: US-PFIZER INC-2020278882

PATIENT
  Age: 77 Year
  Sex: Female

DRUGS (2)
  1. PREGABALIN. [Suspect]
     Active Substance: PREGABALIN
     Indication: NEUROPATHY PERIPHERAL
     Dosage: 50 MG, 2X/DAY
     Route: 048
     Dates: start: 20200710
  2. VICODIN [Concomitant]
     Active Substance: ACETAMINOPHEN\HYDROCODONE BITARTRATE
     Indication: PAIN
     Dosage: 250 MG, AS NEEDED ( ONCE A NIGHT AS NEEDED FOR PAIN)
     Dates: start: 20200710

REACTIONS (10)
  - Balance disorder [Unknown]
  - Condition aggravated [Unknown]
  - Impatience [Unknown]
  - Feeling drunk [Unknown]
  - Tinnitus [Unknown]
  - Dyspnoea [Unknown]
  - Aphonia [Unknown]
  - Vision blurred [Unknown]
  - Insomnia [Unknown]
  - Cough [Unknown]
